FAERS Safety Report 10168944 (Version 5)
Quarter: 2014Q2

REPORT INFORMATION
  Report Type: Report from Study
  Country: CA (occurrence: CA)
  Receive Date: 20140513
  Receipt Date: 20140607
  Transmission Date: 20141212
  Serious: Yes (Hospitalization, Other)
  Sender: FDA-Public Use
  Company Number: CA-ROCHE-1135260

PATIENT
  Age: 72 Year
  Sex: Female
  Weight: 68 kg

DRUGS (10)
  1. ACTEMRA [Suspect]
     Indication: RHEUMATOID ARTHRITIS
     Route: 042
     Dates: start: 20110825
  2. RITUXAN [Suspect]
     Indication: RHEUMATOID ARTHRITIS
     Dosage: DAY 1 AND DAY 15
     Route: 042
     Dates: start: 20101124, end: 20101208
  3. SULFASALAZINE [Concomitant]
  4. CARBOCAL [Concomitant]
  5. LYRICA [Concomitant]
  6. ALENDRONATE [Concomitant]
  7. HYDROMORPHONE [Concomitant]
  8. ACETAMINOPHEN [Concomitant]
     Route: 048
     Dates: start: 20101124, end: 20101208
  9. DIPHENHYDRAMINE HYDROCHLORIDE [Concomitant]
     Route: 048
     Dates: start: 20101124, end: 20101208
  10. METHYLPREDNISOLONE [Concomitant]
     Route: 042
     Dates: start: 20101124, end: 20101208

REACTIONS (18)
  - Pyrexia [Unknown]
  - Arthralgia [Unknown]
  - Dyspnoea [Recovered/Resolved]
  - Dyspnoea [Not Recovered/Not Resolved]
  - Rheumatoid arthritis [Recovering/Resolving]
  - Blood pressure increased [Unknown]
  - Haematochezia [Recovered/Resolved]
  - Abdominal pain [Recovered/Resolved]
  - Weight increased [Unknown]
  - Pruritus [Not Recovered/Not Resolved]
  - Rash [Not Recovered/Not Resolved]
  - Acne [Recovered/Resolved]
  - Pain [Not Recovered/Not Resolved]
  - Fungal infection [Recovered/Resolved]
  - Chills [Recovering/Resolving]
  - Abdominal discomfort [Recovering/Resolving]
  - Fatigue [Unknown]
  - Cough [Unknown]
